FAERS Safety Report 7137892-1 (Version None)
Quarter: 2010Q4

REPORT INFORMATION
  Report Type: 
  Country: None (occurrence: None)
  Receive Date: 20101103
  Receipt Date: 20100907
  Transmission Date: 20110411
  Serious: Yes (Other)
  Sender: FDA-Public Use
  Company Number: 2010S1001361

PATIENT
  Age: 45 Year
  Sex: Female
  Weight: 100 kg

DRUGS (6)
  1. CUBICIN [Suspect]
     Indication: STAPHYLOCOCCAL BACTERAEMIA
     Dosage: 6 MG/KG; IV
     Route: 042
     Dates: start: 20100901, end: 20100905
  2. VANCOMYCIN [Concomitant]
  3. LANSOPRAZOLE [Concomitant]
  4. ONDANSETRON [Concomitant]
  5. METOCLOPRAMIDE [Concomitant]
  6. SUCRALEATE [Concomitant]

REACTIONS (2)
  - BLOOD CREATINE PHOSPHOKINASE INCREASED [None]
  - MYALGIA [None]
